FAERS Safety Report 9406230 (Version 3)
Quarter: 2013Q3

REPORT INFORMATION
  Report Type: Spontaneous
  Country: IT (occurrence: IT)
  Receive Date: 20130717
  Receipt Date: 20130910
  Transmission Date: 20140515
  Serious: Yes (Hospitalization)
  Sender: FDA-Public Use
  Company Number: IT-B.I. PHARMACEUTICALS,INC./RIDGEFIELD-2013-IT-00396IT

PATIENT
  Age: 73 Year
  Sex: Male

DRUGS (9)
  1. CATAPRES-TTS [Suspect]
     Indication: HYPERTENSION
     Route: 062
     Dates: start: 20000101, end: 20130514
  2. NORVASC [Suspect]
     Indication: HYPERTENSION
     Route: 048
     Dates: start: 20000101, end: 20130514
  3. LASIX [Suspect]
     Indication: HYPERTENSION
     Route: 048
     Dates: start: 20000101, end: 20130514
  4. CARDURA [Suspect]
     Indication: HYPERTENSION
     Route: 048
     Dates: start: 20000101, end: 20130514
  5. TICLOPIDINE HYDROCHLORIDE [Concomitant]
     Route: 048
  6. PEPTAZOL [Concomitant]
     Route: 048
  7. ZYLORIC [Concomitant]
     Route: 048
  8. ASPIRINETTA [Concomitant]
     Indication: MYOCARDIAL ISCHAEMIA
  9. CONTRAMAL [Concomitant]
     Dosage: STRENGTH: 100MG/ML

REACTIONS (2)
  - Loss of consciousness [Recovered/Resolved]
  - Syncope [Recovered/Resolved]
